FAERS Safety Report 5350373-0 (Version None)
Quarter: 2007Q2

REPORT INFORMATION
  Report Type: 
  Country: None (occurrence: None)
  Receive Date: 20070606
  Receipt Date: 20070606
  Transmission Date: 20071010
  Serious: Yes (Life-Threatening)
  Sender: FDA-Public Use
  Company Number: None

PATIENT
  Sex: Male
  Weight: 90 kg

DRUGS (1)
  1. RECOMBINANT FACTOR VIIA NOVO NORDISK RFVIIA [Suspect]
     Indication: HAEMORRHAGE

REACTIONS (4)
  - ATRIAL THROMBOSIS [None]
  - CARDIAC ARREST [None]
  - PULMONARY EMBOLISM [None]
  - THROMBOSIS [None]
